FAERS Safety Report 7440692-6 (Version None)
Quarter: 2011Q2

REPORT INFORMATION
  Report Type: 
  Country: None (occurrence: None)
  Receive Date: 20110427
  Receipt Date: 20110418
  Transmission Date: 20111010
  Serious: Yes (Hospitalization)
  Sender: FDA-Public Use
  Company Number: SE-B.I. PHARMACEUTICALS,INC./RIDGEFIELD-2011-SW-00165SW

PATIENT
  Sex: Female

DRUGS (5)
  1. TRAMADOL [Suspect]
     Dosage: 150 MG
     Route: 048
     Dates: end: 20101228
  2. ACETAMINOPHEN [Concomitant]
     Dosage: FORM: FILM COATED TABLETS
  3. SIFROL ER [Suspect]
     Dosage: 0.5 MG
     Route: 048
     Dates: end: 20101228
  4. IMPUGAN [Concomitant]
  5. PROGYNON [Concomitant]

REACTIONS (1)
  - PETIT MAL EPILEPSY [None]
